FAERS Safety Report 9451915 (Version 1)
Quarter: 2013Q3

REPORT INFORMATION
  Report Type: Spontaneous
  Country: US (occurrence: US)
  Receive Date: 20130812
  Receipt Date: 20130812
  Transmission Date: 20140515
  Serious: No
  Sender: FDA-Public Use
  Company Number: US-BIOGENIDEC-2013BI072654

PATIENT
  Sex: Male

DRUGS (1)
  1. TYSABRI [Suspect]
     Indication: MULTIPLE SCLEROSIS
     Route: 042
     Dates: start: 20130721

REACTIONS (8)
  - Sinus disorder [Not Recovered/Not Resolved]
  - Pain in extremity [Unknown]
  - Vision blurred [Unknown]
  - Hypersomnia [Recovered/Resolved with Sequelae]
  - Headache [Unknown]
  - Fatigue [Recovered/Resolved with Sequelae]
  - Dyspnoea [Unknown]
  - Arthralgia [Unknown]
